FAERS Safety Report 22811504 (Version 3)
Quarter: 2025Q4

REPORT INFORMATION
  Report Type: Spontaneous
  Country: EU (occurrence: EU)
  Receive Date: 20230810
  Receipt Date: 20251017
  Transmission Date: 20260118
  Serious: Yes (Hospitalization)
  Sender: MERCK SHARP & DOHME LLC
  Company Number: EU-009507513-1704ESP004769

PATIENT
  Age: 55 Year
  Sex: Male

DRUGS (21)
  1. TEMOZOLOMIDE [Suspect]
     Active Substance: TEMOZOLOMIDE
     Indication: Glioblastoma multiforme
     Dosage: DOSE DESCRIPTION : 75 MG/M2, QD?DAILY DOSE : 75 MILLIGRAM/SQ. METER?REGIMEN DOSE : 600  MILLIGRAM...
     Route: 048
     Dates: start: 20160701, end: 20160708
  2. TEMOZOLOMIDE [Suspect]
     Active Substance: TEMOZOLOMIDE
     Indication: Glioblastoma multiforme
     Dosage: TIME INTERVAL: CYCLICAL: DOSE DESCRIPTION : DAYS 1-5 OF EACH 28-DAY CYCLE FOR 6 CYCLES
     Route: 048
     Dates: start: 20160920, end: 20160925
  3. TEMOZOLOMIDE [Suspect]
     Active Substance: TEMOZOLOMIDE
     Indication: Glioblastoma multiforme
     Dosage: TIME INTERVAL: CYCLICAL: DOSE DESCRIPTION : DAYS 1-5 OF EACH 28-DAY CYCLE FOR 6 CYCLES
     Route: 048
     Dates: start: 20161018, end: 20161204
  4. TEMOZOLOMIDE [Suspect]
     Active Substance: TEMOZOLOMIDE
     Indication: Glioblastoma multiforme
     Dosage: TIME INTERVAL: CYCLICAL: DOSE DESCRIPTION : DAYS 1-5 OF EACH 28-DAY CYCLE FOR 6 CYCLES
     Route: 048
     Dates: start: 20170102
  5. DEPATUXIZUMAB MAFODOTIN [Concomitant]
     Active Substance: DEPATUXIZUMAB MAFODOTIN
     Indication: Glioblastoma multiforme
     Dosage: DOSE DESCRIPTION : DAY 1 OF WEEK 1, 3, AND 5 (2 MG/KG, 1 IN 2 WK)
     Route: 042
     Dates: start: 20160601, end: 20160801
  6. DEPATUXIZUMAB MAFODOTIN [Concomitant]
     Active Substance: DEPATUXIZUMAB MAFODOTIN
     Indication: Glioblastoma multiforme
     Dosage: DOSE DESCRIPTION : DAY 1 AND DAY 15 OF EACH 28-DAY CYCLE FOR A TOTAL OF 12 CYCLES (1 MG/KG)
     Route: 042
     Dates: start: 20160920
  7. LEVETIRACETAM [Concomitant]
     Active Substance: LEVETIRACETAM
     Indication: Seizure prophylaxis
     Dosage: DOSE DESCRIPTION : 1500 MG, BID?DAILY DOSE : 3000 MILLIGRAM
     Route: 048
     Dates: start: 20160826
  8. OMEPRAZOLE [Concomitant]
     Active Substance: OMEPRAZOLE
     Indication: Gastritis prophylaxis
     Dosage: DOSE DESCRIPTION : 20 MG, QD?DAILY DOSE : 20 MILLIGRAM
     Route: 048
     Dates: start: 20160606
  9. DEXAMETHASONE [Concomitant]
     Active Substance: DEXAMETHASONE
     Indication: Brain oedema
     Dosage: DOSE DESCRIPTION : 4 MG, BID?DAILY DOSE : 8 MILLIGRAM
     Route: 048
     Dates: start: 20161128
  10. DEXAMETHASONE [Concomitant]
     Active Substance: DEXAMETHASONE
     Dosage: DOSE DESCRIPTION : 2 MG, UNK
     Route: 042
     Dates: start: 20170217
  11. HYALURONATE SODIUM\TREHALOSE [Concomitant]
     Active Substance: HYALURONATE SODIUM\TREHALOSE
     Indication: Eye lubrication therapy
     Dosage: DOSE DESCRIPTION : 1 DF, TID?DAILY DOSE : 3 DOSAGE FORM?CONCENTRATION: 3 PERCENT
     Route: 047
     Dates: start: 20160721
  12. VIGAMOX [Concomitant]
     Active Substance: MOXIFLOXACIN HYDROCHLORIDE
     Indication: Conjunctivitis
     Dosage: DOSE DESCRIPTION : 5 MG, BID?DAILY DOSE : 10 MILLIGRAM
     Route: 047
     Dates: start: 20160721
  13. GANCICLOVIR [Concomitant]
     Active Substance: GANCICLOVIR
     Indication: Keratitis
     Dosage: DOSE DESCRIPTION : TOTAL DAILY DOSE: 1.5 MG/G
     Route: 047
     Dates: start: 20160721
  14. LACOSAMIDE [Concomitant]
     Active Substance: LACOSAMIDE
     Indication: Seizure prophylaxis
     Dosage: DOSE DESCRIPTION : 100 MG, BID?DAILY DOSE : 200 MILLIGRAM
     Route: 065
     Dates: start: 20160826
  15. VALPROIC ACID [Concomitant]
     Active Substance: VALPROIC ACID
     Indication: Seizure prophylaxis
     Dosage: DOSE DESCRIPTION : 1000 MG, BID?DAILY DOSE : 2000 MILLIGRAM
     Route: 065
     Dates: start: 20160826
  16. PIPERACILLIN SODIUM\TAZOBACTAM SODIUM [Concomitant]
     Active Substance: PIPERACILLIN SODIUM\TAZOBACTAM SODIUM
     Indication: Abdominal sepsis
     Dosage: DOSE DESCRIPTION : 1 G, QD?DAILY DOSE : 1 GRAM
     Route: 042
     Dates: start: 20161215
  17. FENOFIBRATE [Concomitant]
     Active Substance: FENOFIBRATE
     Indication: Hypertriglyceridaemia
     Dosage: DOSE DESCRIPTION : 160 MG, QD?DAILY DOSE : 160 MILLIGRAM
     Route: 048
     Dates: start: 20170201
  18. INNOHEP [Concomitant]
     Active Substance: TINZAPARIN SODIUM
     Indication: Thrombosis prophylaxis
     Dosage: DOSE DESCRIPTION : 16000 IU, QD?DAILY DOSE : 16000 INTERNATIONAL UNIT
     Route: 042
     Dates: start: 20161011
  19. CYCLOPENTOLATE HYDROCHLORIDE [Concomitant]
     Active Substance: CYCLOPENTOLATE HYDROCHLORIDE
     Indication: Mydriasis
     Dosage: DOSE DESCRIPTION : 10 MG/ML, QD
     Route: 047
     Dates: start: 20160721
  20. COLIRCUSI DEXAMETASONA [DEXAMETHASONE SODIUM PHOSPHATE] [Concomitant]
     Indication: Prophylaxis
     Dosage: DOSE DESCRIPTION : 2 GTT, TID?DAILY DOSE : 6 GTT DROPS?CONCENTRATION: 1 PERCENT?REGIMEN DOSE : 66...
     Route: 047
     Dates: start: 20170203, end: 20170213
  21. AQUORAL [GLYCEROL;SILICON DIOXIDE] [Concomitant]
     Indication: Eye lubrication therapy
     Dosage: DOSE DESCRIPTION : 1 DF, QH?DAILY DOSE : 24 DOSAGE FORM?CONCENTRATION: 0.4 PERCENT
     Route: 047
     Dates: start: 20160721

REACTIONS (1)
  - Respiratory tract infection [Recovered/Resolved]

NARRATIVE: CASE EVENT DATE: 20170217
